FAERS Safety Report 13039207 (Version 1)
Quarter: 2016Q4

REPORT INFORMATION
  Report Type: Spontaneous
  Country: US (occurrence: US)
  Receive Date: 20161219
  Receipt Date: 20161219
  Transmission Date: 20170207
  Serious: Yes (Other)
  Sender: FDA-Public Use
  Company Number: US-ROCHE-1868919

PATIENT
  Age: 29 Year
  Sex: Male

DRUGS (3)
  1. VALCYTE [Suspect]
     Active Substance: VALGANCICLOVIR HYDROCHLORIDE
     Indication: PRODUCT USED FOR UNKNOWN INDICATION
     Route: 065
  2. ZARZIO [Concomitant]
     Active Substance: FILGRASTIM
  3. NEUPOGEN [Suspect]
     Active Substance: FILGRASTIM
     Indication: PRODUCT USED FOR UNKNOWN INDICATION
     Route: 065

REACTIONS (5)
  - Neutropenia [Unknown]
  - Platelet count decreased [Unknown]
  - Bone marrow failure [Not Recovered/Not Resolved]
  - Liver transplant [Unknown]
  - Neoplasm malignant [Unknown]
